FAERS Safety Report 7350511-4 (Version None)
Quarter: 2011Q1

REPORT INFORMATION
  Report Type: 
  Country: None (occurrence: None)
  Receive Date: 20110314
  Receipt Date: 20110310
  Transmission Date: 20110831
  Serious: Yes (Life-Threatening)
  Sender: FDA-Public Use
  Company Number: AU-PFIZER INC-2011052548

PATIENT
  Age: 42 Year
  Sex: Female
  Weight: 75 kg

DRUGS (1)
  1. CHAMPIX [Suspect]
     Dosage: 2 MG, 1X/DAY
     Dates: start: 20110128, end: 20110208

REACTIONS (5)
  - THROMBOCYTOPENIA [None]
  - GINGIVAL BLEEDING [None]
  - PETECHIAE [None]
  - CONTUSION [None]
  - MENORRHAGIA [None]
